FAERS Safety Report 5062721-X (Version None)
Quarter: 2006Q3

REPORT INFORMATION
  Report Type: 
  Country: None (occurrence: None)
  Receive Date: 20060725
  Receipt Date: 20060725
  Transmission Date: 20061208
  Serious: Yes (Hospitalization)
  Sender: FDA-Public Use
  Company Number: None

PATIENT
  Age: 52 Year
  Sex: Female
  Weight: 61.4 kg

DRUGS (3)
  1. VOLTAREN [Suspect]
     Dosage: PO
     Route: 048
  2. TOPROL-XL [Concomitant]
  3. TOLTERODINE [Concomitant]

REACTIONS (6)
  - GASTROINTESTINAL HAEMORRHAGE [None]
  - HAEMATEMESIS [None]
  - HAEMOGLOBIN DECREASED [None]
  - INCORRECT DOSE ADMINISTERED [None]
  - MELAENA [None]
  - TREATMENT NONCOMPLIANCE [None]
